FAERS Safety Report 9236425 (Version 2)
Quarter: 2013Q2

REPORT INFORMATION
  Report Type: Spontaneous
  Country: US (occurrence: None)
  Receive Date: 20121031
  Receipt Date: 20130107
  Transmission Date: 20140414
  Serious: Yes (Other)
  Sender: FDA-Public Use
  Company Number: PHEH2012US014421

PATIENT
  Age: 41 Year
  Sex: Female

DRUGS (1)
  1. GILENYA (FTY)CAPSULE, 0.5 MG [Suspect]
     Indication: MULTIPLE SCLEROSIS
     Route: 048
     Dates: start: 20120720

REACTIONS (11)
  - Multiple sclerosis relapse [None]
  - Somnolence [None]
  - Depressed mood [None]
  - Fatigue [None]
  - Balance disorder [None]
  - Gait disturbance [None]
  - Paraesthesia [None]
  - Tearfulness [None]
  - Depression [None]
  - Visual impairment [None]
  - Dizziness [None]
